FAERS Safety Report 10046047 (Version 2)
Quarter: 2014Q2

REPORT INFORMATION
  Report Type: Spontaneous
  Country: CA (occurrence: CA)
  Receive Date: 20140331
  Receipt Date: 20140416
  Transmission Date: 20141212
  Serious: Yes (Other)
  Sender: FDA-Public Use
  Company Number: CA-AMGEN-CANSP2014021782

PATIENT
  Age: 57 Year
  Sex: Male
  Weight: 86.17 kg

DRUGS (14)
  1. ENBREL [Suspect]
     Indication: PSORIASIS
     Dosage: 50 MG, 2 TIMES/WK
     Route: 058
     Dates: start: 201212
  2. METHOTREXATE [Suspect]
     Indication: PRODUCT USED FOR UNKNOWN INDICATION
     Dosage: UNK
     Route: 065
  3. CELEBREX [Concomitant]
     Dosage: 200 MG, DAILY
  4. PREGABALIN [Concomitant]
     Dosage: 75 MG 2 TABLETS BID
  5. ASA [Concomitant]
     Dosage: 80 MG, UNK
  6. METFORMIN [Concomitant]
     Dosage: 500MG 0.5 TABLET IN AM AND 0.5 TABLET IN PM
  7. VIT D [Concomitant]
     Dosage: UNK
  8. BUTRANS                            /00444001/ [Concomitant]
     Dosage: 10 MCG WEEKLY
  9. HYDROVAL [Concomitant]
     Dosage: UNK
  10. BETADERM                           /00008501/ [Concomitant]
     Dosage: 0.1 %, UNK
  11. COVERSYL                           /00790702/ [Concomitant]
     Dosage: UNK UNK, DAILY
  12. LOPROX [Concomitant]
     Dosage: UNK
  13. ASAPHEN [Concomitant]
     Dosage: UNK
  14. SENOKOT                            /00142201/ [Concomitant]
     Dosage: UNK

REACTIONS (7)
  - Periarthritis [Recovering/Resolving]
  - Liver injury [Not Recovered/Not Resolved]
  - Myocardial infarction [Recovered/Resolved]
  - Lower respiratory tract infection [Recovered/Resolved]
  - Dyspnoea [Unknown]
  - Dizziness [Unknown]
  - Dyspnoea exertional [Unknown]
